FAERS Safety Report 6025081-3 (Version None)
Quarter: 2008Q4

REPORT INFORMATION
  Report Type: 
  Country: None (occurrence: None)
  Receive Date: 20081222
  Receipt Date: 20080909
  Transmission Date: 20090506
  Serious: No
  Sender: FDA-Public Use
  Company Number: ALL1-2008-02561

PATIENT
  Age: 27 Year
  Sex: Female
  Weight: 102 kg

DRUGS (4)
  1. VYVANSE [Suspect]
     Indication: ATTENTION DEFICIT/HYPERACTIVITY DISORDER
     Dosage: 30 MG, 1X/DAY:QD, ORAL
     Route: 048
     Dates: start: 20080301, end: 20080401
  2. CYMBALTA [Concomitant]
  3. RISPERDAL [Concomitant]
  4. ELMIRON [Concomitant]

REACTIONS (1)
  - IRRITABILITY [None]
